FAERS Safety Report 12345507 (Version 2)
Quarter: 2017Q2

REPORT INFORMATION
  Report Type: Report from Study
  Country: US (occurrence: US)
  Receive Date: 20160509
  Receipt Date: 20170515
  Transmission Date: 20170830
  Serious: Yes (Other)
  Sender: FDA-Public Use
  Company Number: US-AMGEN-USASL2016055094

PATIENT
  Age: 54 Year
  Sex: Female

DRUGS (3)
  1. ENBREL [Suspect]
     Active Substance: ETANERCEPT
     Dosage: 50 MG, QWK
     Route: 065
  2. ENBREL [Suspect]
     Active Substance: ETANERCEPT
     Indication: RHEUMATOID ARTHRITIS
     Dosage: 50 MG, QWK
     Route: 065
     Dates: start: 2012, end: 201509
  3. HUMIRA [Concomitant]
     Active Substance: ADALIMUMAB
     Dosage: UNK
     Dates: start: 20150923

REACTIONS (10)
  - Wrong technique in product usage process [Unknown]
  - Rotator cuff syndrome [Unknown]
  - Malaise [Unknown]
  - Injection site haemorrhage [Unknown]
  - Injection site pain [Unknown]
  - Herpes zoster [Recovered/Resolved]
  - Drug effect decreased [Unknown]
  - Bronchitis [Unknown]
  - Injection site vesicles [Unknown]
  - Injection site urticaria [Unknown]

NARRATIVE: CASE EVENT DATE: 20170509
